FAERS Safety Report 8413768-4 (Version None)
Quarter: 2012Q2

REPORT INFORMATION
  Report Type: 
  Country: None (occurrence: None)
  Receive Date: 20120605
  Receipt Date: 20120523
  Transmission Date: 20120825
  Serious: No
  Sender: FDA-Public Use
  Company Number: US-ASTRAZENECA-2012SE33690

PATIENT
  Age: 71 Year
  Sex: Female
  Weight: 74.8 kg

DRUGS (2)
  1. NEXIUM [Suspect]
     Indication: GASTROOESOPHAGEAL REFLUX DISEASE
     Route: 048
  2. SYNTHROID [Suspect]
     Indication: BASEDOW'S DISEASE

REACTIONS (6)
  - DYSGEUSIA [None]
  - OESOPHAGEAL PAIN [None]
  - HYPERTENSION [None]
  - OROPHARYNGEAL PAIN [None]
  - GASTROOESOPHAGEAL REFLUX DISEASE [None]
  - OFF LABEL USE [None]
